FAERS Safety Report 9723764 (Version 2)
Quarter: 2014Q1

REPORT INFORMATION
  Report Type: Spontaneous
  Country: US (occurrence: US)
  Receive Date: 20131202
  Receipt Date: 20140321
  Transmission Date: 20141002
  Serious: Yes (Other)
  Sender: FDA-Public Use
  Company Number: US-PFIZER INC-2013338336

PATIENT
  Age: 66 Year
  Sex: Female
  Weight: 68 kg

DRUGS (4)
  1. PREMARIN [Suspect]
     Indication: MENOPAUSAL SYMPTOMS
     Dosage: 0.3 MG, 1X/DAY
     Route: 048
  2. PREMARIN [Suspect]
     Dosage: 0.45 MG, 1X/DAY
     Route: 048
  3. PREMARIN [Suspect]
     Dosage: 0.625 MG, 1X/DAY
     Route: 048
  4. PREMARIN [Suspect]
     Dosage: 0.45 MG, 1X/DAY
     Route: 048

REACTIONS (24)
  - Hepatic neoplasm [Unknown]
  - Thyroid neoplasm [Unknown]
  - Retroperitoneal oedema [Unknown]
  - Splenomegaly [Unknown]
  - Hepatitis [Unknown]
  - Urinary tract infection [Unknown]
  - Oropharyngeal pain [Unknown]
  - Hiatus hernia [Unknown]
  - Phlebolith [Unknown]
  - Headache [Unknown]
  - Neck pain [Unknown]
  - Spinal osteoarthritis [Unknown]
  - Myalgia [Unknown]
  - Arthralgia [Unknown]
  - Cough [Unknown]
  - Photophobia [Unknown]
  - Influenza [Unknown]
  - Flank pain [Unknown]
  - Vaginal infection [Unknown]
  - Renal pain [Unknown]
  - Dysuria [Unknown]
  - Sinus headache [Unknown]
  - Upper-airway cough syndrome [Unknown]
  - Dysphagia [Unknown]
